FAERS Safety Report 12637378 (Version 1)
Quarter: 2016Q3

REPORT INFORMATION
  Report Type: Spontaneous
  Country: US (occurrence: US)
  Receive Date: 20160809
  Receipt Date: 20160809
  Transmission Date: 20161109
  Serious: No
  Sender: FDA-Public Use
  Company Number: US-BEH-2016058724

PATIENT
  Sex: Male
  Weight: 90 kg

DRUGS (28)
  1. PRIVIGEN [Suspect]
     Active Substance: HUMAN IMMUNOGLOBULIN G
     Indication: NEUROMYOPATHY
     Route: 042
  2. PRIVIGEN [Suspect]
     Active Substance: HUMAN IMMUNOGLOBULIN G
     Route: 042
     Dates: start: 201601, end: 201605
  3. NORMAL SALINE [Concomitant]
     Active Substance: SODIUM CHLORIDE
  4. SODIUM CHLORIDE. [Concomitant]
     Active Substance: SODIUM CHLORIDE
  5. VITAMIN D [Concomitant]
     Active Substance: CHOLECALCIFEROL
  6. PRIVIGEN [Suspect]
     Active Substance: HUMAN IMMUNOGLOBULIN G
     Indication: NEUROPATHY PERIPHERAL
     Route: 042
  7. CLONAZEPAM RAPIDS [Concomitant]
  8. IBUPROFEN. [Concomitant]
     Active Substance: IBUPROFEN
  9. SINGULAIR [Concomitant]
     Active Substance: MONTELUKAST SODIUM
  10. ASPIRIN. [Concomitant]
     Active Substance: ASPIRIN
  11. HEPARIN [Concomitant]
     Active Substance: HEPARIN SODIUM
     Dosage: 10 UNITS/ML
  12. XALATAN [Concomitant]
     Active Substance: LATANOPROST
     Dosage: DROPS
  13. ALPHAGAN P [Concomitant]
     Active Substance: BRIMONIDINE TARTRATE
     Dosage: DROPS
  14. SYNTHROID [Concomitant]
     Active Substance: LEVOTHYROXINE SODIUM
  15. FLOMAX [Concomitant]
     Active Substance: TAMSULOSIN HYDROCHLORIDE
     Dosage: SR 24H
  16. DILTIAZEM. [Concomitant]
     Active Substance: DILTIAZEM
     Dosage: 24HR CD SR 24H
  17. ACETAMINOPHEN. [Concomitant]
     Active Substance: ACETAMINOPHEN
  18. VENTOLIN HFA [Concomitant]
     Active Substance: ALBUTEROL SULFATE
     Dosage: HFA AER AD
  19. DETROL [Concomitant]
     Active Substance: TOLTERODINE TARTRATE
  20. PULMICORT FLEXHALER [Concomitant]
     Active Substance: BUDESONIDE
  21. PRIVIGEN [Suspect]
     Active Substance: HUMAN IMMUNOGLOBULIN G
     Route: 042
  22. LIDOCAINE. [Concomitant]
     Active Substance: LIDOCAINE
  23. CELEBREX [Concomitant]
     Active Substance: CELECOXIB
  24. EPI-PEN AUTOINJECTOR [Concomitant]
  25. AXIRON [Concomitant]
     Active Substance: TESTOSTERONE
     Dosage: 30MG/1.5ML SOL MD PMP
  26. DIPHENHYDRAMINE. [Concomitant]
     Active Substance: DIPHENHYDRAMINE
  27. HYDROCHLOROTHIAZIDE. [Concomitant]
     Active Substance: HYDROCHLOROTHIAZIDE
  28. PREVACID [Concomitant]
     Active Substance: LANSOPRAZOLE
     Dosage: DR

REACTIONS (1)
  - Infusion site extravasation [Unknown]
